FAERS Safety Report 10143324 (Version 1)
Quarter: 2014Q2

REPORT INFORMATION
  Report Type: Spontaneous
  Country: GB (occurrence: None)
  Receive Date: 20140428
  Receipt Date: 20140428
  Transmission Date: 20141212
  Serious: Yes (Other)
  Sender: FDA-Public Use
  Company Number: 2306459

PATIENT
  Age: 37 Year
  Sex: Female

DRUGS (7)
  1. (PROPOFOL) [Suspect]
     Indication: INDUCTION OF ANAESTHESIA
     Dosage: 250 MG MILLIGRAM(S) (UNKNOWN) INTRAVENOUS (NOT OTHERWISE SPECIFIED)
     Route: 042
     Dates: start: 20140318, end: 20140318
  2. DEXAMETHASONE [Suspect]
     Indication: PROPHYLAXIS OF NAUSEA AND VOMITING
     Dosage: 6.6 MG MILLIGRAM(S) (UNKNOWN) INTRAVENOUS (NOT OTHERWISE SPECIFIED)
     Route: 042
     Dates: start: 20140318, end: 20140318
  3. PARACETAMOL [Suspect]
     Indication: ANALGESIC THERAPY
     Dosage: 1 MG MILLIGRAM(S), UNKNOWN, INTRAVENOUS (NOT OTHERWISE SPECIFIED)
     Route: 042
     Dates: start: 20140318, end: 20140318
  4. DICLOFENAC SODIUM [Suspect]
     Indication: ANALGESIC THERAPY
     Dosage: 75 MG MILLIGRAM(S), UNKNOWN, INTRAVENOUS (NOT OTHERWISE SPECIFIED)
     Route: 042
     Dates: start: 20140318, end: 20140318
  5. FENTANYL [Suspect]
     Indication: INDUCTION OF ANAESTHESIA
     Dosage: 125 UG MICROGRAM(S), UNKNOWN, INTRAVENOUS (NOT OTHERWISE SPECIFIED)
     Route: 042
     Dates: start: 20140318, end: 20140318
  6. OXYTOCIN [Suspect]
     Indication: EVACUATION OF RETAINED PRODUCTS OF CONCEPTION
     Dosage: 5 IU INTERNATIONAL UNIT(S) (UNKNOWN) INTRAVENOUS (NOT OTHERWISE SPECIFIED)
     Route: 042
     Dates: start: 20140318, end: 20140318
  7. GRANISETRON [Suspect]
     Indication: PROPHYLAXIS OF NAUSEA AND VOMITING
     Dosage: 1 MG MILLIGRAM(S) (UNKNOWN) INTRAVENOUS (NOT OTHERWISE SPECIFIED)
     Route: 042
     Dates: start: 20140318, end: 20140318

REACTIONS (4)
  - Hypotension [None]
  - Bradycardia [None]
  - Lip swelling [None]
  - Periorbital oedema [None]
